FAERS Safety Report 22758114 (Version 4)
Quarter: 2023Q4

REPORT INFORMATION
  Report Type: Spontaneous
  Country: US (occurrence: US)
  Receive Date: 20230727
  Receipt Date: 20231207
  Transmission Date: 20240109
  Serious: Yes (Hospitalization, Other)
  Sender: FDA-Public Use
  Company Number: US-PFIZER INC-202300259191

PATIENT
  Age: 67 Year
  Sex: Male
  Weight: 84.82 kg

DRUGS (11)
  1. VYNDAMAX [Suspect]
     Active Substance: TAFAMIDIS
     Indication: Familial amyloidosis
     Dosage: 61 MG, DAILY
     Route: 048
     Dates: start: 2018
  2. VYNDAMAX [Suspect]
     Active Substance: TAFAMIDIS
     Indication: Cardiac amyloidosis
  3. ADVAIR HFA [Concomitant]
     Active Substance: FLUTICASONE PROPIONATE\SALMETEROL XINAFOATE
     Dosage: UNK, DAILY [100-50 MCG, INHALE 1 PUFF INTO THE LUNGS DAILY VIXLA ]
  4. PROVENTIL [Concomitant]
     Active Substance: ALBUTEROL
     Indication: Wheezing
     Dosage: 2.5 MG, AS NEEDED(TAKE 2.5 MG BY NEBULIZATION EVERY 6 (SIX) HOURS AS NEEDED)
  5. PROVENTIL HFA [Concomitant]
     Active Substance: ALBUTEROL SULFATE
     Dosage: UNK, AS NEEDED(INHALE 1 PUFF INTO THE LUNGS EVERY 6 (SIX) HOURS AS NEEDED)
  6. NORVASC [Concomitant]
     Active Substance: AMLODIPINE BESYLATE
     Dosage: 10 MG, DAILY
     Route: 048
  7. LIPITOR [Concomitant]
     Active Substance: ATORVASTATIN CALCIUM
     Dosage: 40 MG, DAILY
     Route: 048
  8. GLUCOSAMINE + CHONDORITIN [Concomitant]
     Dosage: 1 DF, DAILY(GLUCOSAMINE-CHONDROITIN 500-400 MG TABLET: TAKE 1 TABLET BY MOUTH DAILY MOVE FREE)
     Route: 048
     Dates: end: 202212
  9. FLOMAX [Concomitant]
     Active Substance: TAMSULOSIN HYDROCHLORIDE
     Dosage: 0.4 MG, 1X/DAY(TAKE 0.4 MG BY MOUTH DAILY AFTER DINNER)
     Route: 048
  10. DIOVAN [Concomitant]
     Active Substance: VALSARTAN
     Dosage: 80 MG, DAILY
     Route: 048
  11. MINERALS\VITAMINS [Concomitant]
     Active Substance: MINERALS\VITAMINS
     Dosage: 1 DF, DAILY
     Route: 048

REACTIONS (9)
  - COVID-19 [Recovered/Resolved]
  - Prostate cancer [Recovered/Resolved]
  - Arthralgia [Not Recovered/Not Resolved]
  - Obstructive sleep apnoea syndrome [Not Recovered/Not Resolved]
  - Back pain [Not Recovered/Not Resolved]
  - Pulmonary valve incompetence [Unknown]
  - Electrocardiogram ST-T segment abnormal [Unknown]
  - Tricuspid valve incompetence [Unknown]
  - Sinus bradycardia [Unknown]

NARRATIVE: CASE EVENT DATE: 20181106
